FAERS Safety Report 5040869-3 (Version None)
Quarter: 2006Q2

REPORT INFORMATION
  Report Type: 
  Country: None (occurrence: None)
  Receive Date: 20060601
  Receipt Date: 20060303
  Transmission Date: 20061013
  Serious: No
  Sender: FDA-Public Use
  Company Number: 2006PV009647

PATIENT
  Age: 55 Year
  Sex: Female
  Weight: 104.3273 kg

DRUGS (7)
  1. BYETTA [Suspect]
     Indication: DIABETES MELLITUS NON-INSULIN-DEPENDENT
     Dosage: SEE IMAGE
     Route: 058
     Dates: start: 20051208, end: 20060219
  2. BYETTA [Suspect]
     Indication: DIABETES MELLITUS NON-INSULIN-DEPENDENT
     Dosage: SEE IMAGE
     Route: 058
     Dates: start: 20060220
  3. AMARYL [Concomitant]
  4. ACTOS [Concomitant]
  5. GLUCOPHAGE [Concomitant]
  6. STARLIX [Concomitant]
  7. RESTASIS [Concomitant]

REACTIONS (4)
  - DYSPEPSIA [None]
  - INJECTION SITE URTICARIA [None]
  - THROAT IRRITATION [None]
  - VOMITING [None]
